FAERS Safety Report 20750030 (Version 1)
Quarter: 2022Q2

REPORT INFORMATION
  Report Type: Spontaneous
  Country: US (occurrence: None)
  Receive Date: 20220425
  Receipt Date: 20220425
  Transmission Date: 20220721
  Serious: No
  Sender: FDA-Public Use
  Company Number: None

PATIENT
  Age: 70 Year
  Sex: Female
  Weight: 58.5 kg

DRUGS (4)
  1. METRONIDAZOLE TOPICAL CREAM [Suspect]
     Active Substance: METRONIDAZOLE
     Indication: Rash
     Dosage: OTHER QUANTITY : 45 GRAMS;?FREQUENCY : TWICE A DAY;?
     Route: 061
     Dates: start: 20220419, end: 20220422
  2. AMLODIPINE BESYLATE [Concomitant]
     Active Substance: AMLODIPINE BESYLATE
  3. DEVICE [Concomitant]
     Active Substance: DEVICE
  4. Ibuprofen occasionally [Concomitant]

REACTIONS (2)
  - Skin burning sensation [None]
  - Skin irritation [None]

NARRATIVE: CASE EVENT DATE: 20220419
